FAERS Safety Report 21393541 (Version 1)
Quarter: 2022Q3

REPORT INFORMATION
  Report Type: Spontaneous
  Country: US (occurrence: None)
  Receive Date: 20220928
  Receipt Date: 20220928
  Transmission Date: 20221027
  Serious: Yes (Hospitalization)
  Sender: FDA-Public Use
  Company Number: None

PATIENT
  Age: 71 Year
  Sex: Male
  Weight: 102.87 kg

DRUGS (30)
  1. ETOPOSIDE [Suspect]
     Active Substance: ETOPOSIDE
     Indication: Diffuse large B-cell lymphoma
     Dosage: FREQUENCY : DAILY;?
     Route: 048
     Dates: start: 202209
  2. ALDACTONE [Concomitant]
     Active Substance: SPIRONOLACTONE
  3. ALLOPURINOL [Concomitant]
     Active Substance: ALLOPURINOL
  4. AMLODIPINE [Concomitant]
     Active Substance: AMLODIPINE BESYLATE
  5. ASPIRIN [Concomitant]
     Active Substance: ASPIRIN
  6. ATORVASTATIN CALCIUM [Concomitant]
     Active Substance: ATORVASTATIN CALCIUM
  7. COREG [Concomitant]
     Active Substance: CARVEDILOL
  8. Culturelle Dicyclomine HCI [Concomitant]
  9. Doxazosin Mesylate Ferrous Sulfate FLAX/EVENING PRIMROSE/BILBERRY [Concomitant]
  10. FUROSEMIDE [Concomitant]
     Active Substance: FUROSEMIDE
  11. HUMALOG [Concomitant]
     Active Substance: INSULIN LISPRO
  12. ACETAMINOPHEN\HYDROCODONE [Concomitant]
     Active Substance: ACETAMINOPHEN\HYDROCODONE
  13. INSULIN NOS [Concomitant]
     Active Substance: INSULIN NOS
  14. LANTUS [Concomitant]
     Active Substance: INSULIN GLARGINE
  15. LASIX [Concomitant]
     Active Substance: FUROSEMIDE
  16. LOPERAMIDE [Concomitant]
     Active Substance: LOPERAMIDE
  17. Multi-Vitamin  Mycophenolate NACL [Concomitant]
  18. OMEPRAZOLE [Concomitant]
     Active Substance: OMEPRAZOLE
  19. NALOXONE [Concomitant]
     Active Substance: NALOXONE
  20. ONDANSETRON [Concomitant]
     Active Substance: ONDANSETRON
  21. PERCOCET [Concomitant]
     Active Substance: ACETAMINOPHEN\OXYCODONE HYDROCHLORIDE
  22. prednisone Procrit [Concomitant]
  23. PYRIDOSTIGMINE BROMIDE [Concomitant]
     Active Substance: PYRIDOSTIGMINE BROMIDE
  24. SELENIUM [Concomitant]
     Active Substance: SELENIUM
  25. SODIUM BICARBONATE [Concomitant]
     Active Substance: SODIUM BICARBONATE
  26. SERTRALINE [Concomitant]
     Active Substance: SERTRALINE HYDROCHLORIDE
  27. VITAMIN B12 [Concomitant]
     Active Substance: CYANOCOBALAMIN
  28. VITAMIN D3 [Concomitant]
     Active Substance: CHOLECALCIFEROL
  29. XIFAXAN [Concomitant]
     Active Substance: RIFAXIMIN
  30. ZINC [Concomitant]
     Active Substance: ZINC

REACTIONS (1)
  - COVID-19 [None]
